FAERS Safety Report 20772053 (Version 3)
Quarter: 2022Q2

REPORT INFORMATION
  Report Type: Spontaneous
  Country: US (occurrence: US)
  Receive Date: 20220501
  Receipt Date: 20220614
  Transmission Date: 20220721
  Serious: Yes (Hospitalization, Other)
  Sender: FDA-Public Use
  Company Number: US-BRISTOL-MYERS SQUIBB COMPANY-2022-025297

PATIENT
  Age: 73 Year
  Sex: Female

DRUGS (1)
  1. REVLIMID [Suspect]
     Active Substance: LENALIDOMIDE
     Indication: Anaemia
     Dosage: TAKE 1 CAPSULE BY MOUTH DAILY ON DAYS 1-14 OF A 21 CYCLE
     Route: 048
     Dates: start: 20220404

REACTIONS (5)
  - White blood cell count decreased [Unknown]
  - Sepsis [Unknown]
  - Renal failure [Unknown]
  - Cellulitis [Unknown]
  - Intentional product use issue [Unknown]
